FAERS Safety Report 7336353-4 (Version None)
Quarter: 2011Q1

REPORT INFORMATION
  Report Type: 
  Country: None (occurrence: None)
  Receive Date: 20110307
  Receipt Date: 20110301
  Transmission Date: 20110831
  Serious: Yes (Hospitalization)
  Sender: FDA-Public Use
  Company Number: FR-MEDIMMUNE-MEDI-0012685

PATIENT
  Sex: Male
  Weight: 2.36 kg

DRUGS (2)
  1. SYNAGIS [Suspect]
     Indication: BRONCHOPULMONARY DYSPLASIA
     Dates: start: 20110207, end: 20110207
  2. SYNAGIS [Suspect]

REACTIONS (2)
  - APNOEA [None]
  - PYREXIA [None]
